APPROVED DRUG PRODUCT: SODIUM PHENYLBUTYRATE
Active Ingredient: SODIUM PHENYLBUTYRATE
Strength: 500MG
Dosage Form/Route: TABLET;ORAL
Application: A216462 | Product #001 | TE Code: AB
Applicant: GLENMARK PHARMACEUTICALS LTD
Approved: Nov 1, 2022 | RLD: No | RS: No | Type: RX